FAERS Safety Report 24395945 (Version 1)
Quarter: 2024Q4

REPORT INFORMATION
  Report Type: Spontaneous
  Country: US (occurrence: None)
  Receive Date: 20241003
  Receipt Date: 20241003
  Transmission Date: 20250114
  Serious: Yes (Death)
  Sender: Public
  Company Number: None

PATIENT
  Age: 41 Year
  Sex: Male

DRUGS (3)
  1. RITONAVIR [Suspect]
     Active Substance: RITONAVIR
  2. ETRAVIRINE [Suspect]
     Active Substance: ETRAVIRINE
  3. DARUNAVIR [Suspect]
     Active Substance: DARUNAVIR

REACTIONS (1)
  - Death [None]

NARRATIVE: CASE EVENT DATE: 20241001
